FAERS Safety Report 6494011-2 (Version None)
Quarter: 2009Q4

REPORT INFORMATION
  Report Type: 
  Country: None (occurrence: None)
  Receive Date: 20091214
  Receipt Date: 20081209
  Transmission Date: 20100525
  Serious: No
  Sender: FDA-Public Use
  Company Number: US-BRISTOL-MYERS SQUIBB COMPANY-14437404

PATIENT
  Sex: Female

DRUGS (1)
  1. ABILIFY [Suspect]
     Dosage: BEEN ON ABILIFY FOR APPROX 6MONTHS

REACTIONS (3)
  - ALOPECIA [None]
  - HAIR GROWTH ABNORMAL [None]
  - NAIL GROWTH ABNORMAL [None]
